FAERS Safety Report 17723701 (Version 2)
Quarter: 2020Q2

REPORT INFORMATION
  Report Type: Spontaneous
  Country: US (occurrence: US)
  Receive Date: 20200429
  Receipt Date: 20200505
  Transmission Date: 20200714
  Serious: No
  Sender: FDA-Public Use
  Company Number: NVSC2020US113948

PATIENT
  Sex: Female

DRUGS (1)
  1. XIIDRA [Suspect]
     Active Substance: LIFITEGRAST
     Indication: DRY EYE
     Dosage: 5 %, ONCE2SDO
     Route: 047

REACTIONS (10)
  - Migraine [Unknown]
  - Taste disorder [Unknown]
  - Fatigue [Unknown]
  - Headache [Unknown]
  - Feeling abnormal [Unknown]
  - Dehydration [Unknown]
  - Burning sensation [Unknown]
  - Nausea [Unknown]
  - Tension headache [Unknown]
  - Drug ineffective [Unknown]

NARRATIVE: CASE EVENT DATE: 20200428
